FAERS Safety Report 12886696 (Version 2)
Quarter: 2016Q4

REPORT INFORMATION
  Report Type: Spontaneous
  Country: US (occurrence: US)
  Receive Date: 20161026
  Receipt Date: 20161122
  Transmission Date: 20170207
  Serious: Yes (Disabling, Other)
  Sender: FDA-Public Use
  Company Number: US-SEBELA IRELAND LIMITED-2016SEB01488

PATIENT
  Age: 0 Day
  Sex: Male

DRUGS (1)
  1. PEXEVA [Suspect]
     Active Substance: PAROXETINE MESYLATE
     Indication: FOETAL EXPOSURE DURING PREGNANCY
     Dosage: UNK
     Route: 064

REACTIONS (13)
  - Motor developmental delay [Not Recovered/Not Resolved]
  - Disability [Not Recovered/Not Resolved]
  - Drug withdrawal syndrome neonatal [Unknown]
  - Hypoacusis [Not Recovered/Not Resolved]
  - Speech disorder [Recovering/Resolving]
  - Ear haemorrhage [Unknown]
  - Asthma [Not Recovered/Not Resolved]
  - Developmental delay [Not Recovered/Not Resolved]
  - Selective eating disorder [Recovered/Resolved]
  - Post-traumatic stress disorder [Not Recovered/Not Resolved]
  - Foetal exposure during pregnancy [Recovered/Resolved]
  - Autism [Not Recovered/Not Resolved]
  - Meconium in amniotic fluid [Recovered/Resolved]

NARRATIVE: CASE EVENT DATE: 20060813
